FAERS Safety Report 13511573 (Version 2)
Quarter: 2024Q3

REPORT INFORMATION
  Report Type: Spontaneous
  Country: CN (occurrence: CN)
  Receive Date: 20170504
  Receipt Date: 20240708
  Transmission Date: 20241017
  Serious: Yes (Life-Threatening, Other)
  Sender: PFIZER
  Company Number: CN-MLMSERVICE-20170420-0693682-1

PATIENT
  Age: 37 Year
  Sex: Male

DRUGS (5)
  1. EPIRUBICIN HYDROCHLORIDE [Suspect]
     Active Substance: EPIRUBICIN HYDROCHLORIDE
     Indication: Langerhans^ cell histiocytosis
     Dosage: 90 MG, CYCLIC
     Dates: start: 2009
  2. VINCRISTINE [Suspect]
     Active Substance: VINCRISTINE
     Indication: Langerhans^ cell histiocytosis
     Dosage: 2 MG, CYCLIC
     Dates: start: 2009
  3. CYCLOPHOSPHAMIDE [Suspect]
     Active Substance: CYCLOPHOSPHAMIDE
     Indication: Langerhans^ cell histiocytosis
     Dosage: 1000 MG, CYCLIC
     Dates: start: 2009
  4. PREDNISONE [Suspect]
     Active Substance: PREDNISONE
     Indication: Langerhans^ cell histiocytosis
     Dosage: 90 MG, CYCLIC
     Dates: start: 2009
  5. URSODIOL [Concomitant]
     Active Substance: URSODIOL
     Indication: Langerhans^ cell histiocytosis
     Dosage: 150 MG, 3X/DAY

REACTIONS (1)
  - Liver injury [Unknown]
